FAERS Safety Report 8763637 (Version 1)
Quarter: 2012Q4

REPORT INFORMATION
  Report Type: Report from Study
  Country: DE (occurrence: DE)
  Receive Date: 20120831
  Receipt Date: 20120831
  Transmission Date: 20130627
  Serious: Yes (Other)
  Sender: FDA-Public Use
  Company Number: DE-009507513-2012SP025272

PATIENT

DRUGS (3)
  1. BOCEPREVIR [Suspect]
     Indication: HEPATITIS C
  2. REBETOL [Suspect]
     Indication: HEPATITIS C
  3. PEGINTERFERON ALFA-2A [Suspect]
     Indication: HEPATITIS C
     Dosage: 180 microgram, qw
     Route: 058
     Dates: start: 20120201

REACTIONS (1)
  - Fatigue [Not Recovered/Not Resolved]
